FAERS Safety Report 9503594 (Version 1)
Quarter: 2013Q3

REPORT INFORMATION
  Report Type: Spontaneous
  Country: US (occurrence: None)
  Receive Date: 20130905
  Receipt Date: 20130905
  Transmission Date: 20140515
  Serious: No
  Sender: FDA-Public Use
  Company Number: None

PATIENT
  Age: 44 None
  Sex: Female

DRUGS (3)
  1. SYNTHROID [Suspect]
     Indication: HYPOTHYROIDISM
     Route: 048
     Dates: start: 20130626, end: 20130726
  2. CLONAZEPAM [Concomitant]
  3. VITAMIN D [Concomitant]

REACTIONS (2)
  - Product quality issue [None]
  - Product physical issue [None]
